FAERS Safety Report 12603428 (Version 1)
Quarter: 2016Q3

REPORT INFORMATION
  Report Type: Spontaneous
  Country: GR (occurrence: GR)
  Receive Date: 20160728
  Receipt Date: 20160728
  Transmission Date: 20161109
  Serious: Yes (Death, Hospitalization, Other)
  Sender: FDA-Public Use
  Company Number: PHHY2016GR079605

PATIENT
  Age: 77 Year

DRUGS (5)
  1. EPLERENONE. [Concomitant]
     Active Substance: EPLERENONE
     Indication: CARDIAC FAILURE
     Dosage: 25 MG, QD
     Route: 065
  2. AMIKACIN [Concomitant]
     Active Substance: AMIKACIN
     Indication: RESPIRATORY TRACT INFECTION
     Route: 030
  3. INSULIN [Concomitant]
     Active Substance: INSULIN NOS
     Indication: TYPE 2 DIABETES MELLITUS
     Route: 065
  4. ENTRESTO [Suspect]
     Active Substance: SACUBITRIL\VALSARTAN
     Indication: PRODUCT USED FOR UNKNOWN INDICATION
     Route: 065
  5. FUROSEMIDE. [Concomitant]
     Active Substance: FUROSEMIDE
     Indication: CARDIAC FAILURE
     Dosage: 250 MG, QD
     Route: 048

REACTIONS (11)
  - Device related infection [Unknown]
  - Death [Fatal]
  - Dyspnoea [Unknown]
  - Bacteraemia [Unknown]
  - Blood sodium decreased [Unknown]
  - Generalised oedema [Unknown]
  - Oliguria [Unknown]
  - Hyperkalaemia [Unknown]
  - Renal failure [Recovering/Resolving]
  - Respiratory tract infection [Unknown]
  - Haemoglobin decreased [Unknown]
